FAERS Safety Report 25260089 (Version 1)
Quarter: 2025Q2

REPORT INFORMATION
  Report Type: Spontaneous
  Country: HU (occurrence: None)
  Receive Date: 20250501
  Receipt Date: 20250501
  Transmission Date: 20250716
  Serious: Yes (Disabling)
  Sender: FDA-CTU
  Company Number: None

PATIENT
  Age: 24 Year
  Sex: Male
  Weight: 92 kg

DRUGS (4)
  1. ESCITALOPRAM [Suspect]
     Active Substance: ESCITALOPRAM OXALATE
     Indication: Panic disorder
     Dosage: 1 TABLET DAILY ORAL
     Route: 048
     Dates: start: 20241103, end: 20241110
  2. B-comblex [Concomitant]
  3. C-complex [Concomitant]
  4. OMEGA 3 [Concomitant]
     Active Substance: CAPSAICIN

REACTIONS (18)
  - Therapy interrupted [None]
  - Suicidal ideation [None]
  - Emotional disorder [None]
  - Autonomic nervous system imbalance [None]
  - Nightmare [None]
  - Night sweats [None]
  - Withdrawal syndrome [None]
  - Thirst decreased [None]
  - Decreased appetite [None]
  - Syncope [None]
  - Paraesthesia [None]
  - Anhedonia [None]
  - Hypoaesthesia [None]
  - Sexual dysfunction [None]
  - Erectile dysfunction [None]
  - Loss of libido [None]
  - Anorgasmia [None]
  - Genital anaesthesia [None]

NARRATIVE: CASE EVENT DATE: 20241212
